FAERS Safety Report 5490903-1 (Version None)
Quarter: 2007Q4

REPORT INFORMATION
  Report Type: 
  Country: None (occurrence: None)
  Receive Date: 20071019
  Receipt Date: 20071009
  Transmission Date: 20080405
  Serious: Yes (Hospitalization, Other)
  Sender: FDA-Public Use
  Company Number: US-AMGEN-QUU245699

PATIENT
  Sex: Female
  Weight: 86.7 kg

DRUGS (2)
  1. ENBREL [Suspect]
     Indication: RHEUMATOID ARTHRITIS
     Route: 058
     Dates: start: 20040809
  2. CORTICOSTEROIDS [Concomitant]

REACTIONS (4)
  - HEPATIC STEATOSIS [None]
  - KNEE OPERATION [None]
  - THERAPEUTIC RESPONSE DELAYED [None]
  - WEIGHT INCREASED [None]
